FAERS Safety Report 23156052 (Version 1)
Quarter: 2023Q4

REPORT INFORMATION
  Report Type: Spontaneous
  Country: CN (occurrence: CN)
  Receive Date: 20231107
  Receipt Date: 20231107
  Transmission Date: 20240110
  Serious: Yes (Hospitalization)
  Sender: FDA-Public Use
  Company Number: CN-PFIZER INC-PV202300179860

PATIENT
  Age: 66 Year
  Sex: Female
  Weight: 65 kg

DRUGS (1)
  1. NIRMATRELVIR\RITONAVIR [Suspect]
     Active Substance: NIRMATRELVIR\RITONAVIR
     Indication: COVID-19 pneumonia
     Dosage: [NIRMATRELVIR 150MG]/[RITONAVIR 100MG]; 2X/DAY
     Route: 048
     Dates: start: 20231011, end: 20231014

REACTIONS (1)
  - Heart rate decreased [Recovering/Resolving]

NARRATIVE: CASE EVENT DATE: 20231014
